FAERS Safety Report 4549420-5 (Version None)
Quarter: 2005Q1

REPORT INFORMATION
  Report Type: 
  Country: None (occurrence: None)
  Receive Date: 20050111
  Receipt Date: 20050103
  Transmission Date: 20050727
  Serious: Yes (Hospitalization)
  Sender: FDA-Public Use
  Company Number: 200510045GDDC

PATIENT
  Age: 74 Year
  Sex: Male

DRUGS (2)
  1. FLUDEX [Suspect]
     Indication: ESSENTIAL HYPERTENSION
     Route: 048
  2. TRIATEC [Suspect]
     Route: 048

REACTIONS (2)
  - HEPATOMEGALY [None]
  - RENAL FAILURE [None]
